FAERS Safety Report 4938623-3 (Version None)
Quarter: 2006Q1

REPORT INFORMATION
  Report Type: 
  Country: None (occurrence: None)
  Receive Date: 20060127
  Receipt Date: 20051110
  Transmission Date: 20060701
  Serious: Yes (Other)
  Sender: FDA-Public Use
  Company Number: 2005155581

PATIENT
  Age: 76 Year
  Sex: Female
  Weight: 83.9154 kg

DRUGS (6)
  1. LYRICA [Suspect]
     Indication: STIFF-MAN SYNDROME
     Dosage: 75 MG (75 MG,1 IN 1 D),ORAL
     Route: 048
     Dates: start: 20051026, end: 20051109
  2. PERCOCET [Concomitant]
  3. ATIVAN [Concomitant]
  4. IBUPROFEN [Concomitant]
  5. RIBELFAN (NOSCAPINE, AMINOPHENAZONE, QUININE, SULFAMETHOXYPYRIDAZINE) [Concomitant]
  6. ZANTAC [Concomitant]

REACTIONS (3)
  - INSOMNIA [None]
  - PAIN IN EXTREMITY [None]
  - WEIGHT INCREASED [None]
